FAERS Safety Report 4327401-4 (Version None)
Quarter: 2004Q1

REPORT INFORMATION
  Report Type: 
  Country: None (occurrence: None)
  Receive Date: 20040330
  Receipt Date: 20000804
  Transmission Date: 20041129
  Serious: Yes (Hospitalization)
  Sender: FDA-Public Use
  Company Number: AU-MERCK-00083440

PATIENT
  Age: 36 Year
  Sex: Male

DRUGS (4)
  1. AZITHROMYCIN [Suspect]
     Indication: MYCOBACTERIUM AVIUM COMPLEX INFECTION
     Route: 065
     Dates: start: 19980301
  2. CRIXIVAN [Suspect]
     Indication: HIV INFECTION
     Route: 048
     Dates: start: 19961101
  3. LAMIVUDINE [Concomitant]
     Indication: HIV INFECTION
     Route: 048
     Dates: start: 19961101
  4. STAVUDINE [Concomitant]
     Indication: HIV INFECTION
     Route: 048
     Dates: start: 19961101

REACTIONS (6)
  - DIZZINESS [None]
  - HEADACHE [None]
  - MUSCULOSKELETAL STIFFNESS [None]
  - MYCOBACTERIUM AVIUM COMPLEX INFECTION [None]
  - PATHOGEN RESISTANCE [None]
  - VOMITING [None]
